FAERS Safety Report 6004193-4 (Version None)
Quarter: 2008Q4

REPORT INFORMATION
  Report Type: 
  Country: None (occurrence: None)
  Receive Date: 20081215
  Receipt Date: 20081215
  Transmission Date: 20090506
  Serious: Yes (Other)
  Sender: FDA-Public Use
  Company Number: None

PATIENT
  Age: 48 Year
  Sex: Female
  Weight: 72.1219 kg

DRUGS (1)
  1. PROAMATINE [Suspect]
     Indication: ORTHOSTATIC INTOLERANCE
     Dosage: 1 ONCE DAILY PO
     Route: 048
     Dates: start: 20081214, end: 20081214

REACTIONS (8)
  - CHEST DISCOMFORT [None]
  - CHEST PAIN [None]
  - DYSPNOEA [None]
  - EPISTAXIS [None]
  - HEADACHE [None]
  - HEART RATE INCREASED [None]
  - NAUSEA [None]
  - RHINORRHOEA [None]
